FAERS Safety Report 18442442 (Version 1)
Quarter: 2020Q4

REPORT INFORMATION
  Report Type: Spontaneous
  Country: JP (occurrence: JP)
  Receive Date: 20201029
  Receipt Date: 20201029
  Transmission Date: 20210114
  Serious: Yes (Hospitalization, Other)
  Sender: FDA-Public Use
  Company Number: JP-BRISTOL-MYERS SQUIBB COMPANY-BMS-2019-001561

PATIENT
  Age: 64 Year
  Sex: Male
  Weight: 52 kg

DRUGS (2)
  1. OPDIVO [Suspect]
     Active Substance: NIVOLUMAB
     Indication: RENAL CELL CARCINOMA
     Dosage: 240 MILLIGRAM
     Route: 041
     Dates: start: 20180912, end: 20181205
  2. YERVOY [Suspect]
     Active Substance: IPILIMUMAB
     Indication: RENAL CELL CARCINOMA
     Dosage: 1 MILLIGRAM/KILOGRAM
     Route: 065
     Dates: start: 20180912, end: 20181005

REACTIONS (4)
  - Type 1 diabetes mellitus [Unknown]
  - Diarrhoea [Recovered/Resolved]
  - Autoimmune hepatitis [Unknown]
  - Immune-mediated enterocolitis [Recovering/Resolving]
